FAERS Safety Report 5612274-X (Version None)
Quarter: 2008Q1

REPORT INFORMATION
  Report Type: 
  Country: None (occurrence: None)
  Receive Date: 20080128
  Receipt Date: 20080122
  Transmission Date: 20080703
  Serious: Yes (Death, Life-Threatening, Hospitalization)
  Sender: FDA-Public Use
  Company Number: 2008SP001728

PATIENT
  Age: 67 Year
  Sex: Female
  Weight: 52 kg

DRUGS (2)
  1. TEMOZOLOMIDE [Suspect]
     Indication: NEOPLASM MALIGNANT
     Dosage: 215 MG;QD
     Dates: start: 20071227, end: 20080121
  2. LOMOTIL [Concomitant]

REACTIONS (15)
  - ABDOMINAL PAIN [None]
  - ACIDOSIS [None]
  - ASTHENIA [None]
  - GASTROINTESTINAL HAEMORRHAGE [None]
  - HAEMATOCRIT DECREASED [None]
  - HAEMOGLOBIN DECREASED [None]
  - HEPATIC ENCEPHALOPATHY [None]
  - LEUKOPENIA [None]
  - NAUSEA [None]
  - NERVOUS SYSTEM DISORDER [None]
  - NEUTROPENIA [None]
  - PYREXIA [None]
  - RASH [None]
  - SYNCOPE [None]
  - THROMBOCYTOPENIA [None]
